FAERS Safety Report 7434678-5 (Version None)
Quarter: 2011Q2

REPORT INFORMATION
  Report Type: 
  Country: None (occurrence: None)
  Receive Date: 20110425
  Receipt Date: 20110415
  Transmission Date: 20111010
  Serious: Yes (Other)
  Sender: FDA-Public Use
  Company Number: US-JNJFOC-20101103084

PATIENT
  Sex: Female

DRUGS (4)
  1. NORVASC [Concomitant]
     Route: 065
  2. CALCIUM WITH VITAMIN D [Concomitant]
     Route: 065
  3. LOVAZA [Concomitant]
     Route: 065
  4. DOXIL [Suspect]
     Indication: OVARIAN EPITHELIAL CANCER RECURRENT
     Dosage: UNSPECIFIED DOSE EVERY 4-7 WEEKS FOR 11 YEARS;  CUMULATIVE DOSE 2320 MG/M2
     Route: 042

REACTIONS (1)
  - TONGUE DYSPLASIA [None]
